FAERS Safety Report 7666820-5 (Version None)
Quarter: 2011Q3

REPORT INFORMATION
  Report Type: 
  Country: None (occurrence: None)
  Receive Date: 20110806
  Receipt Date: 20110531
  Transmission Date: 20111222
  Serious: No
  Sender: FDA-Public Use
  Company Number: US-ABBOTT-11P-163-0730024-00

PATIENT
  Sex: Female
  Weight: 90.8 kg

DRUGS (4)
  1. BYETTA [Concomitant]
     Indication: DIABETES MELLITUS
     Route: 058
  2. NIASPAN [Suspect]
     Indication: BLOOD CHOLESTEROL INCREASED
     Route: 048
     Dates: start: 20100101, end: 20110401
  3. UNKNOWN MEDICATION [Concomitant]
     Indication: DIABETES MELLITUS
     Route: 048
  4. HORMONE REPLACEMENT [Concomitant]
     Indication: HYSTERECTOMY
     Route: 048

REACTIONS (3)
  - FLUSHING [None]
  - LOCAL SWELLING [None]
  - BLOOD GLUCOSE INCREASED [None]
